FAERS Safety Report 18919191 (Version 1)
Quarter: 2021Q1

REPORT INFORMATION
  Report Type: Spontaneous
  Country: BR (occurrence: BR)
  Receive Date: 20210220
  Receipt Date: 20210220
  Transmission Date: 20210420
  Serious: Yes (Other)
  Sender: FDA-Public Use
  Company Number: NVSC2021BR009465

PATIENT
  Sex: Male
  Weight: 82 kg

DRUGS (3)
  1. ANAFRANIL [Suspect]
     Active Substance: CLOMIPRAMINE HYDROCHLORIDE
     Indication: OBSESSIVE-COMPULSIVE DISORDER
     Dosage: UNK
     Route: 065
  2. ANAFRANIL [Suspect]
     Active Substance: CLOMIPRAMINE HYDROCHLORIDE
     Indication: OBSESSIVE-COMPULSIVE DISORDER
     Dosage: 1 DF, QD
     Route: 048
     Dates: start: 2004
  3. ANAFRANIL [Suspect]
     Active Substance: CLOMIPRAMINE HYDROCHLORIDE
     Dosage: 1 DF, BID
     Route: 048
     Dates: start: 2004

REACTIONS (10)
  - Premature ejaculation [Not Recovered/Not Resolved]
  - Logorrhoea [Unknown]
  - Sexual dysfunction [Not Recovered/Not Resolved]
  - Vertigo [Recovering/Resolving]
  - Tinnitus [Recovering/Resolving]
  - Drug dependence [Unknown]
  - Erectile dysfunction [Not Recovered/Not Resolved]
  - Agitation [Unknown]
  - Labyrinthitis [Recovering/Resolving]
  - Urinary incontinence [Not Recovered/Not Resolved]

NARRATIVE: CASE EVENT DATE: 2011
